FAERS Safety Report 6263296-X (Version None)
Quarter: 2009Q3

REPORT INFORMATION
  Report Type: 
  Country: None (occurrence: None)
  Receive Date: 20090710
  Receipt Date: 20081209
  Transmission Date: 20100115
  Serious: No
  Sender: FDA-Public Use
  Company Number: A0759730A

PATIENT
  Age: 67 Year
  Sex: Female

DRUGS (18)
  1. REQUIP XL [Suspect]
     Indication: PARKINSON'S DISEASE
     Dosage: 74MG IN THE MORNING
     Route: 048
     Dates: start: 20081111
  2. ALLOPURINOL [Concomitant]
  3. ASPIRIN [Concomitant]
  4. BUMEX [Concomitant]
  5. LEXAPRO [Concomitant]
  6. PROTONIX [Concomitant]
  7. PREMARIN [Concomitant]
  8. DURAGESIC-100 [Concomitant]
  9. SYNTHROID [Concomitant]
  10. ATIVAN [Concomitant]
  11. XALATAN [Concomitant]
  12. METOPROLOL SUCCINATE [Concomitant]
  13. REMERON [Concomitant]
  14. MIRALAX [Concomitant]
  15. MELATONIN [Concomitant]
  16. POTASSIUM CHLORIDE [Concomitant]
  17. ZOCOR [Concomitant]
  18. ALDACTONE [Concomitant]

REACTIONS (2)
  - MUSCLE RIGIDITY [None]
  - OVERDOSE [None]
